FAERS Safety Report 10722021 (Version 4)
Quarter: 2015Q2

REPORT INFORMATION
  Report Type: Spontaneous
  Country: US (occurrence: US)
  Receive Date: 20150119
  Receipt Date: 20150630
  Transmission Date: 20150821
  Serious: Yes (Other)
  Sender: FDA-Public Use
  Company Number: US-GLAXOSMITHKLINE-US2014GSK047297

PATIENT
  Sex: Male

DRUGS (3)
  1. PROMACTA [Suspect]
     Active Substance: ELTROMBOPAG OLAMINE
     Indication: HENOCH-SCHONLEIN PURPURA
     Dosage: 25 MG, VA
     Route: 048
     Dates: start: 20110118
  2. PROMACTA [Suspect]
     Active Substance: ELTROMBOPAG OLAMINE
     Indication: IMMUNE THROMBOCYTOPENIC PURPURA
     Dosage: UNK, QD
     Route: 048
     Dates: start: 20110118
  3. PROMACTA [Suspect]
     Active Substance: ELTROMBOPAG OLAMINE
     Dosage: 25 MG, BID
     Route: 048

REACTIONS (6)
  - Melaena [Unknown]
  - Full blood count increased [Unknown]
  - Platelet count increased [Unknown]
  - Gastric disorder [Unknown]
  - Haematochezia [Unknown]
  - Abdominal pain upper [Unknown]
